FAERS Safety Report 9471657 (Version 3)
Quarter: 2013Q3

REPORT INFORMATION
  Report Type: Spontaneous
  Country: US (occurrence: US)
  Receive Date: 20130822
  Receipt Date: 20130925
  Transmission Date: 20140515
  Serious: Yes (Hospitalization)
  Sender: FDA-Public Use
  Company Number: US-BAXTER-2013BAX032753

PATIENT
  Age: 78 Year
  Sex: Female

DRUGS (2)
  1. DIANEAL LOW CALCIUM [Suspect]
     Indication: PERITONEAL DIALYSIS
     Route: 033
     Dates: start: 20120514, end: 201309
  2. MACRODANTIN [Suspect]
     Indication: URINARY TRACT INFECTION

REACTIONS (7)
  - Fungal infection [Not Recovered/Not Resolved]
  - Catheter site infection [Not Recovered/Not Resolved]
  - Fungal peritonitis [Not Recovered/Not Resolved]
  - Ultrafiltration failure [Unknown]
  - Paranasal sinus hypersecretion [Not Recovered/Not Resolved]
  - Retching [Recovered/Resolved]
  - Urinary tract infection [Unknown]
